FAERS Safety Report 9444492 (Version 2)
Quarter: 2014Q2

REPORT INFORMATION
  Report Type: Spontaneous
  Country: US (occurrence: None)
  Receive Date: 20130805
  Receipt Date: 20140606
  Transmission Date: 20141212
  Serious: Yes (Hospitalization)
  Sender: FDA-Public Use
  Company Number: 1817032

PATIENT
  Age: 31 Year
  Sex: Female

DRUGS (2)
  1. MITOXANTRONE [Suspect]
     Indication: ACUTE MYELOID LEUKAEMIA
  2. INVESTIGATIONAL DRUG [Suspect]
     Indication: ACUTE MYELOID LEUKAEMIA
     Dosage: (NOT OTHERWISE SPECIFIED)
     Route: 042
     Dates: start: 20120418

REACTIONS (5)
  - Bacteraemia [None]
  - Chest pain [None]
  - Hiatus hernia [None]
  - Nosocomial infection [None]
  - Sinus tachycardia [None]
